FAERS Safety Report 9051461 (Version 1)
Quarter: 2013Q1

REPORT INFORMATION
  Report Type: Spontaneous
  Country: US (occurrence: US)
  Receive Date: 20130206
  Receipt Date: 20130206
  Transmission Date: 20140127
  Serious: No
  Sender: FDA-Public Use
  Company Number: US-ALLERGAN-1212619US

PATIENT
  Age: 44 Year
  Sex: Female

DRUGS (4)
  1. RESTASIS [Suspect]
     Indication: DRY EYE
     Dosage: 2 GTT, BID
     Route: 047
     Dates: start: 20120908
  2. BLOOD SERUM EYEDROPS MADE FROM CALLER^S BLOOD PLAMS [Concomitant]
     Indication: DRY EYE
     Dosage: 2 GTT, QID
     Route: 047
  3. DOXYCYCLINE [Concomitant]
     Indication: DRY EYE
     Dosage: UNK
  4. PREDNISONE [Concomitant]
     Indication: SJOGREN^S SYNDROME
     Dosage: UNK UNK, PRN

REACTIONS (2)
  - Photophobia [Not Recovered/Not Resolved]
  - Eye irritation [Not Recovered/Not Resolved]
